FAERS Safety Report 25961109 (Version 2)
Quarter: 2025Q4

REPORT INFORMATION
  Report Type: Spontaneous
  Country: US (occurrence: US)
  Receive Date: 20251027
  Receipt Date: 20251106
  Transmission Date: 20260117
  Serious: Yes (Hospitalization)
  Sender: TEVA
  Company Number: US-TEVA-VS-3384689

PATIENT
  Age: 28 Year
  Sex: Female

DRUGS (2)
  1. HYDROXYCHLOROQUINE [Suspect]
     Active Substance: HYDROXYCHLOROQUINE
     Indication: Systemic lupus erythematosus
     Route: 065
  2. ANIFROLUMAB [Suspect]
     Active Substance: ANIFROLUMAB
     Indication: Systemic lupus erythematosus
     Route: 065

REACTIONS (5)
  - Psoas abscess [Recovering/Resolving]
  - Abdominal abscess [Recovering/Resolving]
  - Bacterial infection [Recovering/Resolving]
  - Sepsis [Recovering/Resolving]
  - Perihepatic abscess [Recovering/Resolving]
